FAERS Safety Report 15179148 (Version 3)
Quarter: 2019Q1

REPORT INFORMATION
  Report Type: Spontaneous
  Country: US (occurrence: US)
  Receive Date: 20180723
  Receipt Date: 20190115
  Transmission Date: 20190417
  Serious: Yes (Disabling)
  Sender: FDA-Public Use
  Company Number: US-ROCHE-2157496

PATIENT
  Sex: Male
  Weight: 91.71 kg

DRUGS (9)
  1. CARBATROL [Concomitant]
     Active Substance: CARBAMAZEPINE
     Dosage: BEFORE MEALS
     Route: 048
  2. LIORESAL [Concomitant]
     Active Substance: BACLOFEN
     Route: 048
  3. CARDURA [Concomitant]
     Active Substance: DOXAZOSIN MESYLATE
     Dosage: AT BEDTIME
     Route: 048
  4. TEGRETOL XR [Concomitant]
     Active Substance: CARBAMAZEPINE
     Dosage: 2 TABLETS BY MOUTH 3 TIMES DAILY BEFORE MEALS
     Route: 048
  5. COPAXONE [Concomitant]
     Active Substance: GLATIRAMER ACETATE
     Dosage: 20 MG TOTAL
     Route: 058
  6. VITAMIN D2 [Concomitant]
     Active Substance: ERGOCALCIFEROL
  7. OCREVUS [Suspect]
     Active Substance: OCRELIZUMAB
     Indication: MULTIPLE SCLEROSIS
     Dosage: 19/DEC/2017, 02/JUN/2018, 19/JUN/2018
     Route: 042
     Dates: start: 20171205, end: 201807
  8. HYDREA [Concomitant]
     Active Substance: HYDROXYUREA
     Route: 048
  9. CYANOCOBALAMIN. [Concomitant]
     Active Substance: CYANOCOBALAMIN
     Route: 048

REACTIONS (1)
  - Trigeminal neuralgia [Recovered/Resolved with Sequelae]
